FAERS Safety Report 9272138 (Version 2)
Quarter: 2013Q2

REPORT INFORMATION
  Report Type: Spontaneous
  Country: US (occurrence: US)
  Receive Date: 20130506
  Receipt Date: 20130523
  Transmission Date: 20140414
  Serious: Yes (Congenital Anomaly, Other)
  Sender: FDA-Public Use
  Company Number: US-PFIZER INC-2013136832

PATIENT
  Sex: Male

DRUGS (8)
  1. ZOLOFT [Suspect]
     Indication: ANXIETY
     Dosage: 100 MG, UNK
     Route: 064
     Dates: start: 200307, end: 200402
  2. ZOLOFT [Suspect]
     Indication: DEPRESSION
  3. SERTRALINE HCL [Suspect]
     Indication: ANXIETY
     Dosage: UNK
     Route: 064
     Dates: start: 200307, end: 200402
  4. SERTRALINE HCL [Suspect]
     Indication: DEPRESSION
  5. CYCLOBENZAPRINE [Concomitant]
     Dosage: 10 MG, UNK
     Route: 064
  6. CELEXA [Concomitant]
     Dosage: 20 MG, UNK
     Route: 064
  7. OMNICEF [Concomitant]
     Dosage: 300 MG, UNK
     Route: 064
  8. ZOFRAN [Concomitant]
     Dosage: 4 MG, UNK
     Route: 064

REACTIONS (4)
  - Foetal exposure during pregnancy [Unknown]
  - Atrial septal defect [Unknown]
  - Right atrial dilatation [Unknown]
  - Dilatation ventricular [Unknown]
